FAERS Safety Report 8131789-6 (Version None)
Quarter: 2012Q1

REPORT INFORMATION
  Report Type: 
  Country: None (occurrence: None)
  Receive Date: 20120208
  Receipt Date: 20120203
  Transmission Date: 20120608
  Serious: Yes (Death)
  Sender: FDA-Public Use
  Company Number: ADR-2012-00251

PATIENT
  Sex: Male

DRUGS (2)
  1. BACLOFEN [Suspect]
     Indication: MUSCLE SPASTICITY
     Dosage: 1,149.7 MCG/DAY
  2. BACLOFEN [Suspect]
     Indication: CEREBRAL PALSY
     Dosage: 1,149.7 MCG/DAY

REACTIONS (1)
  - DEVICE DAMAGE [None]
